FAERS Safety Report 24400855 (Version 1)
Quarter: 2024Q4

REPORT INFORMATION
  Report Type: Spontaneous
  Country: US (occurrence: US)
  Receive Date: 20241006
  Receipt Date: 20241006
  Transmission Date: 20250115
  Serious: Yes (Other)
  Sender: ADVANZ PHARMA
  Company Number: US-MLMSERVICE-20240916-PI194161-00270-1

PATIENT

DRUGS (16)
  1. PREDNISOLONE [Suspect]
     Active Substance: PREDNISOLONE
     Indication: Corneal epithelium defect
     Dosage: UNK, PRESERVATIVE-FREE PA1% WAS OBTAINED
  2. PREDNISOLONE [Suspect]
     Active Substance: PREDNISOLONE
     Indication: Iritis
     Dosage: UNK UNK, BID (ON DAY 100, PRESERVATIVE-FREE PA1% WAS DECREASED TO BID)
     Dates: start: 2024
  3. PREDNISOLONE [Suspect]
     Active Substance: PREDNISOLONE
     Indication: Corneal epithelium defect
     Dosage: UNK UNK, QID (ON DAY 18)
     Dates: start: 2024, end: 2024
  4. PREDNISOLONE [Suspect]
     Active Substance: PREDNISOLONE
     Indication: Iritis
     Dosage: UNK UNK, Q2H (INCREASED TO Q2 HOURS) ON DAY 20
  5. PREDNISOLONE [Suspect]
     Active Substance: PREDNISOLONE
     Dosage: UNK UNK, QID, ON DAY 27 (STOPPED ON DAY 30)
  6. PREDNISOLONE [Suspect]
     Active Substance: PREDNISOLONE
     Dosage: UNK UNK, Q2H (ON DAY 41, PA1% Q2 HOURS WAS RESUMED)
     Dates: start: 2024, end: 2024
  7. PREDNISOLONE [Suspect]
     Active Substance: PREDNISOLONE
     Dosage: UNK UNK, Q3H (ON DAY 48, PA1% WAS REDUCED TO Q3 HOURS)
  8. PREDNISOLONE [Suspect]
     Active Substance: PREDNISOLONE
     Dosage: UNK, DOSE WAS INCREASED
  9. PREDNISOLONE [Suspect]
     Active Substance: PREDNISOLONE
     Dosage: UNK, POST-OPERATIVELY, STANDARD (WITH PRESERVATIVES) PA1% WERE ADMINISTRERED
  10. AMOXICILLIN [Concomitant]
     Active Substance: AMOXICILLIN
     Indication: Conjunctivitis
     Dosage: ON DAY 2
     Route: 048
  11. PREDNISONE [Concomitant]
     Active Substance: PREDNISONE
     Indication: Corneal epithelium defect
     Dosage: 60 MG, QD (ON DAY 30)
     Route: 048
  12. TRIFLURIDINE [Concomitant]
     Active Substance: TRIFLURIDINE
     Indication: Monkeypox
     Dosage: UNK, 6ID (ON DAY 100, TOPICAL TRIFLURIDINE 6X DAILY WAS INITIATED)
     Route: 061
  13. TRIFLURIDINE [Concomitant]
     Active Substance: TRIFLURIDINE
     Dosage: UNK, CONTINUED FOR 15 DAYS
     Route: 061
  14. OFLOXACIN [Concomitant]
     Active Substance: OFLOXACIN
     Indication: Conjunctivitis
     Dosage: ON DAY 3
     Route: 061
  15. OFLOXACIN [Concomitant]
     Active Substance: OFLOXACIN
     Indication: Monkeypox
  16. MOXIFLOXACIN [Concomitant]
     Active Substance: MOXIFLOXACIN
     Indication: Monkeypox
     Dosage: UNK

REACTIONS (3)
  - Keratitis viral [Recovered/Resolved]
  - Monkeypox [Recovered/Resolved]
  - Infection [Recovered/Resolved]

NARRATIVE: CASE EVENT DATE: 20240101
